FAERS Safety Report 4890039-4 (Version None)
Quarter: 2006Q1

REPORT INFORMATION
  Report Type: 
  Country: None (occurrence: None)
  Receive Date: 20060123
  Receipt Date: 20060123
  Transmission Date: 20060701
  Serious: Yes (Other)
  Sender: FDA-Public Use
  Company Number: None

PATIENT
  Age: 4 Year
  Sex: Female
  Weight: 11.2 kg

DRUGS (1)
  1. OCTAGAM [Suspect]
     Indication: IMMUNODEFICIENCY COMMON VARIABLE
     Dosage: 13 ML/HR
     Dates: start: 20051103, end: 20051103

REACTIONS (7)
  - ALOPECIA [None]
  - COUGH [None]
  - DECREASED APPETITE [None]
  - MADAROSIS [None]
  - ORAL PAIN [None]
  - RHINORRHOEA [None]
  - VOMITING [None]
